FAERS Safety Report 17618717 (Version 1)
Quarter: 2020Q2

REPORT INFORMATION
  Report Type: Spontaneous
  Country: DE (occurrence: DE)
  Receive Date: 20200403
  Receipt Date: 20200403
  Transmission Date: 20200713
  Serious: Yes (Death, Other)
  Sender: FDA-Public Use
  Company Number: DE-009507513-1910DEU007141

PATIENT
  Age: 64 Year
  Sex: Male

DRUGS (6)
  1. PEMETREXED DISODIUM [Suspect]
     Active Substance: PEMETREXED DISODIUM
     Indication: NEOPLASM MALIGNANT
     Dosage: CYCLICAL (MANTENANCE)
     Dates: end: 201901
  2. PEMBROLIZUMAB. [Suspect]
     Active Substance: PEMBROLIZUMAB
     Indication: NEOPLASM MALIGNANT
     Dosage: 1ST LINE THERAPY, FOR A TOTAL OF 8 CYCLES,FOR A PALLIATIVE THERAPY
     Dates: start: 20171114, end: 20180503
  3. CISPLATIN (+) PEMETREXED DISODIUM [Suspect]
     Active Substance: CISPLATIN\PEMETREXED
     Indication: NEOPLASM MALIGNANT
     Dosage: 2ND LINE THERAPY, FOR TOTAL OF 4 CYCLES,
     Dates: start: 20180524, end: 20180726
  4. DOCETAXEL. [Suspect]
     Active Substance: DOCETAXEL
     Indication: NEOPLASM MALIGNANT
     Dosage: 3RD LINE THERAPY
     Dates: start: 20190528, end: 20190709
  5. NINTEDANIB [Suspect]
     Active Substance: NINTEDANIB
     Indication: NEOPLASM MALIGNANT
     Dosage: 3RD LINE THERAPY
     Dates: start: 20190521, end: 20190722
  6. PEMBROLIZUMAB. [Suspect]
     Active Substance: PEMBROLIZUMAB
     Dosage: MAINTENANCE THERAPY
     Dates: start: 20180814, end: 20190108

REACTIONS (3)
  - Pleural effusion [Unknown]
  - Malignant neoplasm progression [Unknown]
  - Death [Fatal]

NARRATIVE: CASE EVENT DATE: 20180508
